FAERS Safety Report 22263714 (Version 1)
Quarter: 2023Q2

REPORT INFORMATION
  Report Type: Spontaneous
  Country: IT (occurrence: IT)
  Receive Date: 20230428
  Receipt Date: 20230428
  Transmission Date: 20230721
  Serious: Yes (Other)
  Sender: FDA-Public Use
  Company Number: IT-SUN PHARMACEUTICAL INDUSTRIES LTD-2023R1-386838

PATIENT
  Age: 25 Year
  Sex: Female

DRUGS (1)
  1. SUNITINIB [Suspect]
     Active Substance: SUNITINIB
     Indication: Anaplastic meningioma
     Dosage: UNK
     Route: 065
     Dates: end: 201803

REACTIONS (2)
  - Ovarian haemorrhage [Unknown]
  - Disease progression [Unknown]
